FAERS Safety Report 18058432 (Version 2)
Quarter: 2020Q3

REPORT INFORMATION
  Report Type: Report from Study
  Country: US (occurrence: US)
  Receive Date: 20200723
  Receipt Date: 20200728
  Transmission Date: 20201103
  Serious: Yes (Hospitalization)
  Sender: FDA-Public Use
  Company Number: US-KARYOPHARM THERAPEUTICS, INC.-2020KPT000761

PATIENT
  Age: 69 Year
  Sex: Female

DRUGS (2)
  1. PACLITAXEL. [Suspect]
     Active Substance: PACLITAXEL
     Indication: MALIGNANT PERITONEAL NEOPLASM
     Dosage: 80 MG/M2, WEEKLY FOR 2 WEEKS PER 3?WEEK CYCLE
     Route: 042
     Dates: start: 20200702
  2. SELINEXOR [Suspect]
     Active Substance: SELINEXOR
     Indication: MALIGNANT PERITONEAL NEOPLASM
     Dosage: 60 MG, 2X/WEEK FOR 2 WEEKS PER 3?WEEK CYCLE
     Route: 048
     Dates: start: 20200702

REACTIONS (3)
  - Fatigue [Recovered/Resolved]
  - Presyncope [Recovered/Resolved]
  - Dizziness [Recovered/Resolved]

NARRATIVE: CASE EVENT DATE: 20200706
